FAERS Safety Report 23074112 (Version 1)
Quarter: 2023Q4

REPORT INFORMATION
  Report Type: Spontaneous
  Country: US (occurrence: None)
  Receive Date: 20231016
  Receipt Date: 20231016
  Transmission Date: 20240109
  Serious: Yes (Other)
  Sender: FDA-Public Use
  Company Number: None

PATIENT
  Age: 66 Year
  Sex: Female

DRUGS (1)
  1. AUSTEDO [Suspect]
     Active Substance: DEUTETRABENAZINE
     Dosage: FREQUENCY : DAILY;?
     Route: 048

REACTIONS (2)
  - Dementia [None]
  - Weight decreased [None]

NARRATIVE: CASE EVENT DATE: 20231016
